FAERS Safety Report 6448942-X (Version None)
Quarter: 2009Q4

REPORT INFORMATION
  Report Type: 
  Country: None (occurrence: None)
  Receive Date: 20091120
  Receipt Date: 20091116
  Transmission Date: 20100525
  Serious: Yes (Hospitalization)
  Sender: FDA-Public Use
  Company Number: A0812998A

PATIENT
  Age: 59 Year
  Sex: Male

DRUGS (8)
  1. TYKERB [Suspect]
     Dosage: 250MG FIVE TIMES PER DAY
     Route: 048
     Dates: start: 20080601
  2. COZAAR [Concomitant]
  3. PAROXETINE HCL [Concomitant]
  4. FLOMAX [Concomitant]
  5. WARFARIN SODIUM [Concomitant]
  6. VYTORIN [Concomitant]
  7. OXYBUTYNIN CHLORIDE [Concomitant]
  8. LORAZEPAM [Concomitant]

REACTIONS (7)
  - ABDOMINAL DISTENSION [None]
  - ABDOMINAL PAIN UPPER [None]
  - ACNE [None]
  - BLOOD PRESSURE DECREASED [None]
  - DIARRHOEA [None]
  - FAECES DISCOLOURED [None]
  - FATIGUE [None]
